FAERS Safety Report 9526884 (Version 1)
Quarter: 2013Q3

REPORT INFORMATION
  Report Type: Spontaneous
  Country: PK (occurrence: PK)
  Receive Date: 20130916
  Receipt Date: 20130916
  Transmission Date: 20140515
  Serious: Yes (Other)
  Sender: FDA-Public Use
  Company Number: PK-MYLANLABS-2013S1020147

PATIENT
  Sex: Female

DRUGS (3)
  1. PROPRANOLOL [Suspect]
     Indication: EYELID HAEMANGIOMA
     Dosage: 1MG/KG BODY WEIGHT/DAY; SLOWLY INCREASED TO 4.5MG/KG BODY WEIGHT/DAY
     Route: 048
  2. PROPRANOLOL [Suspect]
     Indication: EYELID HAEMANGIOMA
     Dosage: 4.5MG/KG BODY WEIGHT/DAY; IN 3 DIVIDED DOSES
     Route: 048
  3. PREDNISOLONE [Suspect]
     Indication: EYELID HAEMANGIOMA
     Dosage: 2MG/KG BODY WEIGHT/DAY
     Route: 065

REACTIONS (8)
  - Weight increased [Unknown]
  - Swelling [Unknown]
  - Hyperphagia [Unknown]
  - Polydipsia [Unknown]
  - Polyuria [Unknown]
  - Dyspnoea [Recovered/Resolved]
  - Abdominal discomfort [Unknown]
  - Rash [Unknown]
